FAERS Safety Report 8461643-1 (Version None)
Quarter: 2012Q2

REPORT INFORMATION
  Report Type: 
  Country: None (occurrence: None)
  Receive Date: 20120625
  Receipt Date: 20120621
  Transmission Date: 20120825
  Serious: Yes (Hospitalization, Other)
  Sender: FDA-Public Use
  Company Number: PHHY2012IT048349

PATIENT
  Sex: Female

DRUGS (6)
  1. COUMADIN [Concomitant]
  2. VALSARTAN  AND HYDROCHLOROTHIAZIDE [Suspect]
     Dosage: 1 DF (320 MG VALS AND 25 MG HCTZ), UNK
     Route: 048
     Dates: start: 20110411, end: 20120412
  3. ZOLOFT [Concomitant]
  4. METFORMIN HCL [Concomitant]
     Dosage: 2000 MG, DAILY
     Route: 048
  5. CONCOR [Concomitant]
  6. ZANEDIP [Concomitant]

REACTIONS (2)
  - CARDIOMEGALY [None]
  - HYPOKALAEMIA [None]
